FAERS Safety Report 19890897 (Version 2)
Quarter: 2022Q3

REPORT INFORMATION
  Report Type: Report from Study
  Country: IT (occurrence: IT)
  Receive Date: 20210928
  Receipt Date: 20220726
  Transmission Date: 20221026
  Serious: Yes (Life-Threatening, Other)
  Sender: FDA-Public Use
  Company Number: IT-PFIZER INC-202101272678

PATIENT
  Age: 41 Year
  Sex: Female

DRUGS (3)
  1. TRASTUZUMAB [Suspect]
     Active Substance: TRASTUZUMAB
     Indication: HER2 positive breast cancer
     Dosage: UNK
  2. TAMOXIFEN [Concomitant]
     Active Substance: TAMOXIFEN
     Dosage: UNK
  3. TRIPTORELIN [Concomitant]
     Active Substance: TRIPTORELIN
     Dosage: UNK

REACTIONS (1)
  - Cardiac failure [Recovering/Resolving]
